FAERS Safety Report 20941793 (Version 29)
Quarter: 2024Q4

REPORT INFORMATION
  Report Type: Report from Study
  Country: JP (occurrence: JP)
  Receive Date: 20220610
  Receipt Date: 20241216
  Transmission Date: 20250115
  Serious: Yes (Other)
  Sender: TAKEDA
  Company Number: JP-TAKEDA-2022TJP055603

PATIENT
  Age: 51 Year
  Sex: Female

DRUGS (8)
  1. ICATIBANT [Suspect]
     Active Substance: ICATIBANT ACETATE
     Indication: Hereditary angioedema
     Dosage: 30 MILLIGRAM
  2. ICATIBANT [Suspect]
     Active Substance: ICATIBANT ACETATE
  3. TAKHZYRO [Suspect]
     Active Substance: LANADELUMAB-FLYO
     Indication: Hereditary angioedema
     Dosage: 300 MILLIGRAM, Q2WEEKS
     Dates: start: 20230803
  4. TAKHZYRO [Suspect]
     Active Substance: LANADELUMAB-FLYO
     Dosage: 300 MILLIGRAM, Q2WEEKS
     Dates: start: 20240308
  5. CALONAL [Concomitant]
     Active Substance: ACETAMINOPHEN
     Indication: Headache
     Dosage: UNK
  6. BEROTRALSTAT HYDROCHLORIDE [Concomitant]
     Active Substance: BEROTRALSTAT HYDROCHLORIDE
     Dosage: UNK
  7. TEGRETOL [Concomitant]
     Active Substance: CARBAMAZEPINE
     Indication: Trigeminal neuralgia
     Dosage: UNK
  8. BERINERT P [Concomitant]
     Active Substance: HUMAN C1-ESTERASE INHIBITOR
     Indication: Product used for unknown indication
     Dosage: UNK

REACTIONS (54)
  - Brain oedema [Not Recovered/Not Resolved]
  - Brain oedema [Unknown]
  - Meniere^s disease [Unknown]
  - Weight decreased [Unknown]
  - Feeling abnormal [Unknown]
  - Feeling abnormal [Unknown]
  - Cough [Unknown]
  - Dyspnoea [Unknown]
  - Nasopharyngitis [Unknown]
  - Coronavirus infection [Unknown]
  - Abdominal pain [Unknown]
  - Constipation [Recovered/Resolved]
  - Physical deconditioning [Unknown]
  - Pain [Unknown]
  - Movement disorder [Recovered/Resolved]
  - Malaise [Unknown]
  - Fall [Unknown]
  - Somnolence [Unknown]
  - Motor dysfunction [Unknown]
  - Physical deconditioning [Unknown]
  - Fall [Unknown]
  - Hereditary angioedema [Unknown]
  - Dental caries [Unknown]
  - Lymphadenopathy [Unknown]
  - Swelling [Unknown]
  - Fall [Unknown]
  - Vision blurred [Unknown]
  - Injection site pain [Unknown]
  - Hereditary angioedema [Unknown]
  - Dysphonia [Unknown]
  - Bone pain [Unknown]
  - Erythema annulare [Unknown]
  - Overwork [Unknown]
  - Back pain [Recovering/Resolving]
  - Discouragement [Unknown]
  - Physical deconditioning [Unknown]
  - Pharyngeal oedema [Unknown]
  - Malaise [Unknown]
  - Pallor [Unknown]
  - Performance status decreased [Unknown]
  - Feeling abnormal [Unknown]
  - Eye symptom [Unknown]
  - Dysstasia [Unknown]
  - Pharyngeal oedema [Unknown]
  - Facial pain [Unknown]
  - Nausea [Unknown]
  - Injection site pain [Unknown]
  - Headache [Unknown]
  - Headache [Unknown]
  - Therapeutic product effect incomplete [Unknown]
  - Therapeutic product effect incomplete [Unknown]
  - Product use complaint [Unknown]
  - Inappropriate schedule of product administration [Unknown]
  - Product storage error [Unknown]

NARRATIVE: CASE EVENT DATE: 20220401
